FAERS Safety Report 8362080 (Version 8)
Quarter: 2015Q2

REPORT INFORMATION
  Report Type: Spontaneous
  Country: US (occurrence: US)
  Receive Date: 20120130
  Receipt Date: 20150605
  Transmission Date: 20150821
  Serious: Yes (Hospitalization, Other)
  Sender: FDA-Public Use
  Company Number: US-009507513-1201USA03708

PATIENT
  Sex: Female
  Weight: 62.6 kg

DRUGS (5)
  1. FOSAMAX [Suspect]
     Active Substance: ALENDRONATE SODIUM
     Indication: OSTEOPOROSIS POSTMENOPAUSAL
     Dosage: UNK
     Route: 048
     Dates: start: 1999
  2. FOSAMAX [Suspect]
     Active Substance: ALENDRONATE SODIUM
     Indication: OSTEOPENIA
     Dosage: 70 MG, QW
     Route: 048
     Dates: start: 20010314, end: 20080114
  3. FOSAMAX [Suspect]
     Active Substance: ALENDRONATE SODIUM
     Dosage: 70 MG, QW
     Dates: start: 20040113, end: 20080312
  4. ALENDRONATE SODIUM. [Suspect]
     Active Substance: ALENDRONATE SODIUM
     Dosage: 70 MG, UNK
     Route: 048
     Dates: start: 20080312, end: 20111117
  5. FOSAMAX [Suspect]
     Active Substance: ALENDRONATE SODIUM
     Indication: OSTEOPOROSIS POSTMENOPAUSAL
     Dosage: 70 MG, UNK
     Route: 048
     Dates: start: 20080312, end: 20110314

REACTIONS (68)
  - Intramedullary rod insertion [Recovered/Resolved with Sequelae]
  - Arrhythmia [Unknown]
  - Blood cholesterol [Unknown]
  - Cataract [Unknown]
  - Spinal osteoarthritis [Unknown]
  - Visual acuity reduced [Unknown]
  - Fall [Unknown]
  - Ligament rupture [Unknown]
  - Fall [Unknown]
  - Osteoarthritis [Unknown]
  - Hyperlipidaemia [Unknown]
  - Colitis microscopic [Unknown]
  - Myalgia [Unknown]
  - Diarrhoea [Unknown]
  - Spinal compression fracture [Unknown]
  - Femur fracture [Recovered/Resolved with Sequelae]
  - Groin pain [Recovered/Resolved]
  - Rib fracture [Unknown]
  - Fractured sacrum [Recovered/Resolved]
  - Skin disorder [Unknown]
  - Fungal infection [Unknown]
  - Eye infection [Unknown]
  - Syncope [Unknown]
  - Cough [Unknown]
  - Atrial fibrillation [Recovering/Resolving]
  - Injection site reaction [Recovering/Resolving]
  - Tooth abscess [Unknown]
  - Anxiety [Recovered/Resolved]
  - Uterine prolapse [Unknown]
  - Rectocele [Unknown]
  - Hyponatraemia [Recovering/Resolving]
  - Atrial flutter [Recovering/Resolving]
  - Depression [Unknown]
  - Femur fracture [Unknown]
  - Fall [Unknown]
  - Chondrocalcinosis [Unknown]
  - Urinary tract infection [Unknown]
  - Eye infection [Unknown]
  - Back pain [Unknown]
  - Diverticulum [Unknown]
  - Musculoskeletal pain [Unknown]
  - Nausea [Unknown]
  - Multiple sclerosis [Unknown]
  - Cystocele [Unknown]
  - Intervertebral disc degeneration [Unknown]
  - Osteoarthritis [Unknown]
  - Intraocular pressure test abnormal [Unknown]
  - Gastrooesophageal reflux disease [Unknown]
  - Dizziness [Unknown]
  - Hyponatraemia [Unknown]
  - Pancytopenia [Unknown]
  - Low turnover osteopathy [Unknown]
  - Vertebral foraminal stenosis [Unknown]
  - Bacterial infection [Unknown]
  - Fibrocystic breast disease [Unknown]
  - Peptic ulcer [Unknown]
  - Gastritis [Unknown]
  - Oesophagitis [Unknown]
  - Radiculopathy [Unknown]
  - Eye infection [Unknown]
  - Rheumatoid arthritis [Unknown]
  - Supraventricular tachycardia [Unknown]
  - Coronary artery disease [Unknown]
  - Laceration [Unknown]
  - Musculoskeletal discomfort [Unknown]
  - Iron deficiency [Unknown]
  - Meniscus injury [Unknown]
  - Urinary incontinence [Unknown]

NARRATIVE: CASE EVENT DATE: 2000
